FAERS Safety Report 26036986 (Version 1)
Quarter: 2025Q4

REPORT INFORMATION
  Report Type: Spontaneous
  Country: EU (occurrence: EU)
  Receive Date: 20251112
  Receipt Date: 20251112
  Transmission Date: 20260117
  Serious: Yes (Hospitalization, Disabling)
  Sender: PFIZER
  Company Number: None

PATIENT
  Age: 81 Year
  Sex: Male
  Weight: 79 kg

DRUGS (2)
  1. ELREXFIO [Suspect]
     Active Substance: ELRANATAMAB-BCMM
     Indication: Light chain disease
     Dosage: 12 MG + 32 MG (3 DAYS BETWEEN DOSES)
     Dates: start: 20251015
  2. ELREXFIO [Suspect]
     Active Substance: ELRANATAMAB-BCMM
     Indication: Plasma cell myeloma

REACTIONS (3)
  - Hypotension [Not Recovered/Not Resolved]
  - Deep vein thrombosis [Recovering/Resolving]
  - Polyneuropathy [Not Recovered/Not Resolved]

NARRATIVE: CASE EVENT DATE: 20251016
